FAERS Safety Report 4309630-9 (Version None)
Quarter: 2004Q1

REPORT INFORMATION
  Report Type: 
  Country: None (occurrence: None)
  Receive Date: 20040302
  Receipt Date: 20040220
  Transmission Date: 20041129
  Serious: Yes (Other)
  Sender: FDA-Public Use
  Company Number: US-JNJFOC-20040204915

PATIENT
  Age: 63 Year
  Sex: Female

DRUGS (7)
  1. REMICADE [Suspect]
     Indication: RHEUMATOID ARTHRITIS
     Dosage: INTRAVENOUS
     Route: 042
  2. ACIPHEX [Concomitant]
  3. PEPCID [Concomitant]
  4. TOPROL (METOPROLOL SUCCINATE) [Concomitant]
  5. ESTRADIOL [Concomitant]
  6. ALLEGRA [Concomitant]
  7. CLARITIN [Concomitant]

REACTIONS (1)
  - BASAL CELL CARCINOMA [None]
